FAERS Safety Report 13352929 (Version 1)
Quarter: 2017Q1

REPORT INFORMATION
  Report Type: Spontaneous
  Country: GB (occurrence: GB)
  Receive Date: 20170320
  Receipt Date: 20170320
  Transmission Date: 20170429
  Serious: Yes (Death, Other)
  Sender: FDA-Public Use
  Company Number: GB-MYLANLABS-2017M1016697

PATIENT

DRUGS (2)
  1. TACROLIMUS. [Suspect]
     Active Substance: TACROLIMUS
     Indication: PROPHYLAXIS AGAINST TRANSPLANT REJECTION
     Route: 048
     Dates: start: 201511, end: 201512
  2. MYFORTIC [Concomitant]
     Active Substance: MYCOPHENOLATE SODIUM
     Dosage: UNK

REACTIONS (7)
  - Gastrointestinal haemorrhage [Unknown]
  - Blindness [Unknown]
  - Spinal cord haemorrhage [Unknown]
  - Paraplegia [Unknown]
  - Thrombotic microangiopathy [Fatal]
  - Haemorrhage subcutaneous [Unknown]
  - Retinal haemorrhage [Unknown]
